FAERS Safety Report 18636548 (Version 2)
Quarter: 2021Q1

REPORT INFORMATION
  Report Type: Spontaneous
  Country: US (occurrence: US)
  Receive Date: 20201218
  Receipt Date: 20210128
  Transmission Date: 20210419
  Serious: Yes (Other)
  Sender: FDA-Public Use
  Company Number: US-PURDUE-USA-2020-0169406

PATIENT
  Sex: Male

DRUGS (4)
  1. OXYCODONE/ ACETAMINOPHEN TABLETS [Suspect]
     Active Substance: ACETAMINOPHEN\OXYCODONE HYDROCHLORIDE
     Indication: FOOT FRACTURE
     Dosage: UNK
     Route: 048
  2. TRAMADOL. [Suspect]
     Active Substance: TRAMADOL
     Indication: FOOT FRACTURE
     Dosage: UNK
     Route: 065
     Dates: start: 2009
  3. HEROIN [Suspect]
     Active Substance: DIAMORPHINE
     Indication: PRODUCT USED FOR UNKNOWN INDICATION
     Dosage: UNK
     Route: 065
  4. OXYCONTIN [Suspect]
     Active Substance: OXYCODONE HYDROCHLORIDE
     Indication: FOOT FRACTURE
     Dosage: 80 MG, UNK
     Route: 048

REACTIONS (19)
  - Hepatitis C [Unknown]
  - Withdrawal syndrome [Unknown]
  - Nasopharyngitis [Unknown]
  - Respiratory rate decreased [Unknown]
  - Overdose [Unknown]
  - Vomiting [Unknown]
  - Depression [Unknown]
  - Hyperaesthesia [Unknown]
  - Drug dependence [Unknown]
  - Somnolence [Unknown]
  - Anxiety [Unknown]
  - Social problem [Unknown]
  - Confusional state [Unknown]
  - Appetite disorder [Unknown]
  - Suicidal behaviour [Unknown]
  - Nausea [Unknown]
  - Constipation [Unknown]
  - Diarrhoea [Unknown]
  - Bone pain [Unknown]
